FAERS Safety Report 16828439 (Version 2)
Quarter: 2020Q1

REPORT INFORMATION
  Report Type: Spontaneous
  Country: US (occurrence: US)
  Receive Date: 20190919
  Receipt Date: 20200127
  Transmission Date: 20200409
  Serious: Yes (Other)
  Sender: FDA-Public Use
  Company Number: US-SA-2019SA257232

PATIENT
  Age: 47 Year
  Sex: Female
  Weight: 58.96 kg

DRUGS (10)
  1. TAXOTERE [Suspect]
     Active Substance: DOCETAXEL
     Indication: BREAST CANCER FEMALE
     Dosage: 139 MG, QW
     Route: 042
     Dates: start: 20130108, end: 20130108
  2. PEPCID [Concomitant]
     Active Substance: FAMOTIDINE
     Dosage: UNK [INJECT INTO THE VEIN ONCE.]
     Route: 042
     Dates: start: 20130108, end: 20130108
  3. K-DUR [Concomitant]
     Active Substance: POTASSIUM CHLORIDE
     Dosage: 1 DF, BID
     Route: 048
     Dates: start: 20130108, end: 20130219
  4. TAXOTERE [Suspect]
     Active Substance: DOCETAXEL
     Dosage: 139 MG, QW
     Route: 042
     Dates: start: 20130423, end: 20130423
  5. EMEND [FOSAPREPITANT MEGLUMINE] [Concomitant]
  6. PARAPLATIN [Concomitant]
     Active Substance: CARBOPLATIN
     Indication: BREAST CANCER FEMALE
     Dosage: UNK
  7. HERCEPTIN [Concomitant]
     Active Substance: TRASTUZUMAB
     Dosage: 318 MG [INJECT 318 MG INTO THE VEIN ONCE. - INTRAVENOUS]
     Route: 042
  8. ALOXI [Concomitant]
     Active Substance: PALONOSETRON HYDROCHLORIDE
  9. BENADRYL [Concomitant]
     Active Substance: DIPHENHYDRAMINE HYDROCHLORIDE
     Dosage: UNK [INJECT INTO THE VEIN ONCE]
     Route: 065
     Dates: start: 20130108, end: 20130108
  10. DEXAMETHASONE SODIUM [Concomitant]
     Active Substance: DEXAMETHASONE

REACTIONS (6)
  - Pain [Unknown]
  - Impaired quality of life [Unknown]
  - Alopecia [Recovering/Resolving]
  - Psychological trauma [Unknown]
  - Emotional distress [Unknown]
  - Anxiety [Unknown]
